APPROVED DRUG PRODUCT: MELPHALAN HYDROCHLORIDE
Active Ingredient: MELPHALAN HYDROCHLORIDE
Strength: EQ 50MG BASE/VIAL
Dosage Form/Route: INJECTABLE;INJECTION
Application: A207032 | Product #001
Applicant: USWM LLC
Approved: May 3, 2019 | RLD: No | RS: No | Type: DISCN